FAERS Safety Report 16490065 (Version 2)
Quarter: 2023Q1

REPORT INFORMATION
  Report Type: Report from Study
  Country: CA (occurrence: None)
  Receive Date: 20190628
  Receipt Date: 20230224
  Transmission Date: 20230417
  Serious: Yes (Hospitalization, Other)
  Sender: FDA-Public Use
  Company Number: CA-ORION CORPORATION ORION PHARMA-TREX2019-2048

PATIENT
  Age: 73 Year
  Sex: Male

DRUGS (13)
  1. METHOTREXATE [Interacting]
     Active Substance: METHOTREXATE
     Indication: Product used for unknown indication
     Route: 065
  2. ACTEMRA [Interacting]
     Active Substance: TOCILIZUMAB
     Indication: Product used for unknown indication
     Route: 065
  3. COSENTYX [Interacting]
     Active Substance: SECUKINUMAB
     Indication: Psoriasis
     Route: 058
  4. COSENTYX [Interacting]
     Active Substance: SECUKINUMAB
     Route: 058
  5. COSENTYX [Interacting]
     Active Substance: SECUKINUMAB
     Route: 058
  6. COSENTYX [Interacting]
     Active Substance: SECUKINUMAB
     Route: 058
  7. COSENTYX [Interacting]
     Active Substance: SECUKINUMAB
     Route: 058
  8. COSENTYX [Interacting]
     Active Substance: SECUKINUMAB
     Route: 058
  9. COSENTYX [Interacting]
     Active Substance: SECUKINUMAB
     Route: 058
  10. COSENTYX [Interacting]
     Active Substance: SECUKINUMAB
     Route: 058
  11. COSENTYX [Interacting]
     Active Substance: SECUKINUMAB
     Route: 058
  12. DOXYCYCLINE [Concomitant]
     Active Substance: DOXYCYCLINE
     Route: 065
  13. ENBREL [Concomitant]
     Active Substance: ETANERCEPT
     Route: 065

REACTIONS (11)
  - Drug ineffective [Not Recovered/Not Resolved]
  - Inappropriate schedule of product administration [Not Recovered/Not Resolved]
  - Drug interaction [Not Recovered/Not Resolved]
  - Abscess limb [Not Recovered/Not Resolved]
  - Infection [Not Recovered/Not Resolved]
  - Pruritus [Not Recovered/Not Resolved]
  - Psoriasis [Not Recovered/Not Resolved]
  - Skin plaque [Not Recovered/Not Resolved]
  - Acne [Not Recovered/Not Resolved]
  - Cardiac disorder [Not Recovered/Not Resolved]
  - Pain [Not Recovered/Not Resolved]
